FAERS Safety Report 13631437 (Version 1)
Quarter: 2017Q2

REPORT INFORMATION
  Report Type: Spontaneous
  Country: GB (occurrence: GB)
  Receive Date: 20170608
  Receipt Date: 20170608
  Transmission Date: 20170830
  Serious: Yes (Other)
  Sender: FDA-Public Use
  Company Number: GB-TEVA-776765ACC

PATIENT
  Age: 48 Year
  Sex: Male
  Weight: 110 kg

DRUGS (3)
  1. SERTRALINE [Concomitant]
     Active Substance: SERTRALINE HYDROCHLORIDE
     Dosage: 1 DOSAGE FORMS DAILY;
     Dates: start: 20161102
  2. PRIMIDONE. [Suspect]
     Active Substance: PRIMIDONE
     Dates: start: 20170526
  3. TRIMOVATE [Concomitant]
     Active Substance: CLOBETASONE BUTYRATE\NYSTATIN\OXYTETRACYCLINE CALCIUM
     Dosage: AS DIRECTED.
     Route: 061
     Dates: start: 20170522

REACTIONS (3)
  - Confusional state [Unknown]
  - Ataxia [Unknown]
  - Aphasia [Unknown]

NARRATIVE: CASE EVENT DATE: 20170526
